FAERS Safety Report 9036232 (Version 1)
Quarter: 2013Q1

REPORT INFORMATION
  Report Type: Spontaneous
  Country: FR (occurrence: None)
  Receive Date: 20130114
  Receipt Date: 20130114
  Transmission Date: 20140127
  Serious: Yes (Death, Hospitalization)
  Sender: FDA-Public Use
  Company Number: 7185027

PATIENT
  Age: 82 Year
  Sex: Male

DRUGS (7)
  1. LEVOTHYROX (LEVOTHYROXINE SODIUM) INFUSION [Suspect]
     Indication: PRODUCT USED FOR UNKNOWN INDICATION
     Route: 048
  2. AMIODARONE [Suspect]
     Dosage: 200 MG, 5 IN 1 WK, ORAL
     Route: 048
     Dates: start: 2007, end: 20121114
  3. FLUVASTATIN [Suspect]
     Route: 048
     Dates: end: 20121111
  4. COKENZEN [Suspect]
     Route: 048
     Dates: end: 20121111
  5. ELIGARD [Suspect]
     Dosage: 45 MG, 2 IN 1 Y, ORAL
  6. LASILIX (FUROSEMIDE) [Suspect]
     Route: 048
  7. AMLOR [Suspect]
     Route: 048
     Dates: end: 20121111

REACTIONS (4)
  - Acute respiratory distress syndrome [None]
  - Lung disorder [None]
  - Respiratory failure [None]
  - Haemodynamic instability [None]
